FAERS Safety Report 14007518 (Version 3)
Quarter: 2017Q4

REPORT INFORMATION
  Report Type: Report from Study
  Country: US (occurrence: US)
  Receive Date: 20170925
  Receipt Date: 20171027
  Transmission Date: 20180321
  Serious: Yes (Hospitalization, Other)
  Sender: FDA-Public Use
  Company Number: US-VERTEX PHARMACEUTICALS-2017-003504

PATIENT
  Age: 44 Year
  Sex: Male

DRUGS (22)
  1. NACL [Concomitant]
     Active Substance: SODIUM CHLORIDE
  2. LOPERAMIDE [Concomitant]
     Active Substance: LOPERAMIDE
  3. AMPYRA [Suspect]
     Active Substance: DALFAMPRIDINE
     Indication: MULTIPLE SCLEROSIS
     Dosage: 10 MG, BID
     Route: 048
     Dates: start: 20120316
  4. CAYSTON [Concomitant]
     Active Substance: AZTREONAM
  5. TOBI [Concomitant]
     Active Substance: TOBRAMYCIN
  6. PANCREAZE [Concomitant]
     Active Substance: PANCRELIPASE AMYLASE\PANCRELIPASE LIPASE\PANCRELIPASE PROTEASE
     Dosage: UNK, BID
  7. KETOCONAZOLE. [Concomitant]
     Active Substance: KETOCONAZOLE
  8. ORKAMBI [Suspect]
     Active Substance: IVACAFTOR\LUMACAFTOR
     Indication: CYSTIC FIBROSIS
     Dosage: 400MG/ 250MG, BID
     Route: 048
     Dates: start: 20150821
  9. NOVOLOG [Concomitant]
     Active Substance: INSULIN ASPART
  10. LANSOPRAZOLE. [Concomitant]
     Active Substance: LANSOPRAZOLE
  11. AZITHROMYCIN ANHYDROUS. [Concomitant]
     Active Substance: AZITHROMYCIN ANHYDROUS
  12. PERFOROMIST [Concomitant]
     Active Substance: FORMOTEROL FUMARATE DIHYDRATE
  13. PULMOZYME [Concomitant]
     Active Substance: DORNASE ALFA
  14. TAC [Concomitant]
     Active Substance: TRIAMCINOLONE ACETONIDE
  15. SMZ-TMP [Concomitant]
     Active Substance: SULFAMETHOXAZOLE\TRIMETHOPRIM
  16. URSODIOL. [Concomitant]
     Active Substance: URSODIOL
  17. ADVAIR HFA [Concomitant]
     Active Substance: FLUTICASONE PROPIONATE\SALMETEROL XINAFOATE
  18. LEVOFLOXACIN. [Concomitant]
     Active Substance: LEVOFLOXACIN
  19. ALBUTEROL                          /00139501/ [Concomitant]
     Active Substance: ALBUTEROL
  20. BACTRIM [Concomitant]
     Active Substance: SULFAMETHOXAZOLE\TRIMETHOPRIM
  21. GILENYA [Concomitant]
     Active Substance: FINGOLIMOD HYDROCHLORIDE
  22. COLISTIN [Concomitant]
     Active Substance: COLISTIN

REACTIONS (4)
  - Lung transplant [Unknown]
  - Infective pulmonary exacerbation of cystic fibrosis [Recovered/Resolved]
  - Pancytopenia [Unknown]
  - Liver transplant [Unknown]

NARRATIVE: CASE EVENT DATE: 2017
